FAERS Safety Report 10082064 (Version 2)
Quarter: 2014Q2

REPORT INFORMATION
  Report Type: Report from Study
  Country: US (occurrence: US)
  Receive Date: 20140416
  Receipt Date: 20140610
  Transmission Date: 20141212
  Serious: Yes (Hospitalization)
  Sender: FDA-Public Use
  Company Number: US-BRISTOL-MYERS SQUIBB COMPANY-20612214

PATIENT
  Sex: 0

DRUGS (16)
  1. ARIPIPRAZOLE [Suspect]
     Indication: DEPRESSION
     Dosage: LAST DOSE ON 18MAR14
     Dates: start: 20131216
  2. DOCUSATE SODIUM + SENNA [Concomitant]
  3. PETROLATUM, WHITE [Concomitant]
  4. POLYETHYLENE GLYCOL [Concomitant]
  5. PIPERACILLIN + TAZOBACTAM [Concomitant]
  6. OMNIPAQUE [Concomitant]
  7. HYDROMORPHONE [Concomitant]
  8. HEPARIN [Concomitant]
  9. ROCEPHIN [Concomitant]
  10. VANCOMYCIN [Concomitant]
  11. ZOFRAN [Concomitant]
     Route: 042
  12. MORPHINE [Concomitant]
     Route: 042
  13. CLINDAMYCIN [Concomitant]
     Route: 042
  14. CEPHALEXIN [Concomitant]
  15. OXYMETAZOLINE [Concomitant]
  16. SODIUM CHLORIDE [Concomitant]

REACTIONS (1)
  - Erysipelas [Recovered/Resolved]
